FAERS Safety Report 25978466 (Version 1)
Quarter: 2025Q4

REPORT INFORMATION
  Report Type: Spontaneous
  Country: JP (occurrence: JP)
  Receive Date: 20251030
  Receipt Date: 20251030
  Transmission Date: 20260117
  Serious: Yes (Hospitalization)
  Sender: MERCK SHARP & DOHME LLC
  Company Number: JP-009507513-2312155

PATIENT
  Age: 65 Year
  Sex: Male
  Weight: 78 kg

DRUGS (6)
  1. KEYTRUDA [Suspect]
     Active Substance: PEMBROLIZUMAB
     Indication: Renal neoplasm
     Dosage: STRENGTH 100MG
     Route: 041
     Dates: start: 20240723, end: 20250107
  2. BISOPROLOL FUMARATE [Concomitant]
     Active Substance: BISOPROLOL FUMARATE
     Dosage: ^SAWAI^ 1 TABLET 1,
     Route: 065
  3. IMIDAPRIL HYDROCHLORIDE [Concomitant]
     Active Substance: IMIDAPRIL HYDROCHLORIDE
     Dosage: ^SAWAI^ 1 TABLET 1,
     Route: 065
  4. ROSUVASTATIN [Concomitant]
     Active Substance: ROSUVASTATIN
     Dosage: ^DSEP^ 1 TABLET 1,
     Route: 065
  5. CARVEDILOL [Concomitant]
     Active Substance: CARVEDILOL
     Dosage: ^DSEP^ 1 TABLET 1,
     Route: 065
  6. Vasolan [Concomitant]
     Dosage: TABLET 40MG 1 TABLET/TIME DURING ATTACK, ONE-TIME DOSE
     Route: 065

REACTIONS (3)
  - Immune-mediated adverse reaction [Recovering/Resolving]
  - Vogt-Koyanagi-Harada disease [Recovering/Resolving]
  - Uveitis [Recovering/Resolving]

NARRATIVE: CASE EVENT DATE: 20250128
